FAERS Safety Report 4281040-2 (Version None)
Quarter: 2004Q1

REPORT INFORMATION
  Report Type: 
  Country: None (occurrence: None)
  Receive Date: 20040129
  Receipt Date: 20030825
  Transmission Date: 20041129
  Serious: No
  Sender: FDA-Public Use
  Company Number: US-BRISTOL-MYERS SQUIBB COMPANY-12365128

PATIENT
  Sex: Female

DRUGS (1)
  1. PLATINOL [Suspect]
     Dosage: ^FOUR DAYS WORTH^ IN ONE DAY

REACTIONS (1)
  - OVERDOSE [None]
